FAERS Safety Report 12456719 (Version 5)
Quarter: 2017Q3

REPORT INFORMATION
  Report Type: Report from Study
  Country: AU (occurrence: AU)
  Receive Date: 20160610
  Receipt Date: 20170905
  Transmission Date: 20171127
  Serious: Yes (Hospitalization)
  Sender: FDA-Public Use
  Company Number: AU-CELGENEUS-AUS-2016060663

PATIENT
  Age: 68 Year
  Sex: Male
  Weight: 88.36 kg

DRUGS (22)
  1. OXYCONTIN [Concomitant]
     Active Substance: OXYCODONE HYDROCHLORIDE
     Indication: BACK PAIN
  2. OXYCONTIN [Concomitant]
     Active Substance: OXYCODONE HYDROCHLORIDE
     Indication: ABDOMINAL PAIN
  3. SIFROL [Concomitant]
     Active Substance: PRAMIPEXOLE
     Indication: RESTLESS LEGS SYNDROME
     Dosage: 1 MILLIGRAM
     Route: 048
     Dates: start: 2013
  4. SPIRIVA [Concomitant]
     Active Substance: TIOTROPIUM BROMIDE MONOHYDRATE
     Indication: CHRONIC OBSTRUCTIVE PULMONARY DISEASE
     Dosage: 18 MICROGRAM
     Route: 048
     Dates: start: 20150715
  5. LYRICA [Concomitant]
     Active Substance: PREGABALIN
     Indication: NEURALGIA
     Dosage: 150 MILLIGRAM
     Route: 048
     Dates: start: 2013
  6. EFEXOR [Concomitant]
     Active Substance: VENLAFAXINE HYDROCHLORIDE
     Indication: DEPRESSION
     Dosage: 150 MILLIGRAM
     Route: 048
     Dates: start: 201604
  7. ABRAXANE [Suspect]
     Active Substance: PACLITAXEL
     Dosage: 100 MILLIGRAM/SQ. METER
     Route: 041
     Dates: start: 20160414, end: 20160512
  8. COLOXYL WITH SENNA [Concomitant]
     Active Substance: DOCUSATE\SENNOSIDES
     Indication: CONSTIPATION
     Route: 048
     Dates: start: 20150715
  9. PANTOPRAZOLE [Concomitant]
     Active Substance: PANTOPRAZOLE
     Indication: VOMITING
  10. POTASSIUM CHLORIDE. [Concomitant]
     Active Substance: POTASSIUM CHLORIDE
     Indication: HYPOKALAEMIA
     Dosage: 2400 MILLIGRAM
     Route: 048
     Dates: start: 20160423
  11. CARBOPLATIN. [Suspect]
     Active Substance: CARBOPLATIN
     Indication: NON-SMALL CELL LUNG CANCER
     Dosage: AUC=6
     Route: 041
     Dates: start: 20160414, end: 20160512
  12. OXYCODONE [Concomitant]
     Active Substance: OXYCODONE
     Indication: ARTHRALGIA
     Route: 048
     Dates: start: 20150715
  13. CARBOPLATIN. [Suspect]
     Active Substance: CARBOPLATIN
     Dosage: 380 MILLIGRAM
     Route: 041
     Dates: start: 20160512
  14. OXYCONTIN [Concomitant]
     Active Substance: OXYCODONE HYDROCHLORIDE
     Indication: ARTHRALGIA
     Dosage: 20 MILLIGRAM
     Route: 048
     Dates: start: 20150715
  15. JANUMET [Concomitant]
     Active Substance: METFORMIN HYDROCHLORIDE\SITAGLIPTIN PHOSPHATE
     Indication: DIABETES MELLITUS
     Dosage: 50/1000 MG
     Route: 048
     Dates: start: 201604, end: 20160423
  16. ABRAXANE [Suspect]
     Active Substance: PACLITAXEL
     Indication: NON-SMALL CELL LUNG CANCER
     Dosage: 175 MILLIGRAM
     Route: 041
     Dates: start: 20160512
  17. OXYCODONE [Concomitant]
     Active Substance: OXYCODONE
     Indication: ABDOMINAL PAIN
  18. ONDANSETRON [Concomitant]
     Active Substance: ONDANSETRON
     Indication: NAUSEA
     Route: 048
     Dates: start: 20160423
  19. PANTOPRAZOLE [Concomitant]
     Active Substance: PANTOPRAZOLE
     Indication: NAUSEA
     Route: 048
     Dates: start: 20160423
  20. ATEZOLIZUMAB. [Suspect]
     Active Substance: ATEZOLIZUMAB
     Indication: NON-SMALL CELL LUNG CANCER
     Dosage: 1200 MILLIGRAM
     Route: 041
     Dates: start: 20160414, end: 20160512
  21. OXYCODONE [Concomitant]
     Active Substance: OXYCODONE
     Indication: BACK PAIN
  22. TARGIN [Concomitant]
     Active Substance: NALOXONE HYDROCHLORIDE\OXYCODONE HYDROCHLORIDE
     Indication: PAIN
     Route: 065
     Dates: start: 201605

REACTIONS (1)
  - Abdominal pain [Recovered/Resolved]

NARRATIVE: CASE EVENT DATE: 20160518
